FAERS Safety Report 5447502-7 (Version None)
Quarter: 2007Q3

REPORT INFORMATION
  Report Type: 
  Country: None (occurrence: None)
  Receive Date: 20070910
  Receipt Date: 20070906
  Transmission Date: 20080115
  Serious: Yes (Other)
  Sender: FDA-Public Use
  Company Number: B0483598A

PATIENT
  Age: 15 Year
  Sex: Female
  Weight: 95 kg

DRUGS (2)
  1. CEFAZOLIN [Suspect]
     Indication: ABSCESS
     Dosage: 2G PER DAY
     Route: 042
     Dates: start: 20070806, end: 20070806
  2. EPINEPHRINE [Concomitant]
     Route: 030

REACTIONS (4)
  - ANAPHYLACTIC SHOCK [None]
  - COUGH [None]
  - RASH [None]
  - WHEEZING [None]
